FAERS Safety Report 14081454 (Version 1)
Quarter: 2017Q4

REPORT INFORMATION
  Report Type: Report from Study
  Country: ES (occurrence: ES)
  Receive Date: 20171013
  Receipt Date: 20171013
  Transmission Date: 20180321
  Serious: Yes (Hospitalization)
  Sender: FDA-Public Use
  Company Number: ES-BAYER-2017-189763

PATIENT
  Age: 70 Year
  Sex: Male

DRUGS (4)
  1. ATORVASTATIN [Concomitant]
     Active Substance: ATORVASTATIN
     Indication: DYSLIPIDAEMIA
     Dosage: 20 MG, QD
     Route: 048
     Dates: start: 20160701
  2. ADIRO 300 MG [Suspect]
     Active Substance: ASPIRIN
     Indication: CEREBRAL ISCHAEMIA
     Dosage: 300 MG, QD
     Route: 048
     Dates: start: 20160701, end: 20170318
  3. IBUPROFEN. [Interacting]
     Active Substance: IBUPROFEN
     Indication: BACK PAIN
     Dosage: 600 MG, QD
     Route: 048
     Dates: start: 20170310, end: 20170318
  4. OLMESARTAN MEDOXOMIL. [Concomitant]
     Active Substance: OLMESARTAN MEDOXOMIL
     Indication: HYPERTENSION
     Dosage: 20 MG, QD
     Route: 048
     Dates: start: 20160701

REACTIONS (4)
  - Thrombocytopenia [Recovered/Resolved]
  - Gastric ulcer haemorrhage [Recovered/Resolved]
  - Anaemia [Recovered/Resolved]
  - Mallory-Weiss syndrome [Recovered/Resolved]

NARRATIVE: CASE EVENT DATE: 20170318
